FAERS Safety Report 5952348-7 (Version None)
Quarter: 2008Q4

REPORT INFORMATION
  Report Type: 
  Country: None (occurrence: None)
  Receive Date: 20081113
  Receipt Date: 20081104
  Transmission Date: 20090506
  Serious: Yes (Hospitalization)
  Sender: FDA-Public Use
  Company Number: PHHO2008DE11882

PATIENT
  Sex: Male
  Weight: 74.3 kg

DRUGS (2)
  1. SANDIMMUNE [Suspect]
     Indication: RENAL TRANSPLANT
     Dosage: 35 MG, BID
     Route: 048
     Dates: start: 20080108
  2. RAD 666 RAD+TAB [Suspect]
     Indication: RENAL TRANSPLANT
     Dosage: 0.75 MG, BID
     Route: 048
     Dates: start: 20080401

REACTIONS (3)
  - HAEMATOMA [None]
  - LYMPHOCELE [None]
  - NEPHROPATHY TOXIC [None]
